FAERS Safety Report 8613855-1 (Version None)
Quarter: 2012Q3

REPORT INFORMATION
  Report Type: 
  Country: None (occurrence: None)
  Receive Date: 20120823
  Receipt Date: 20120809
  Transmission Date: 20120928
  Serious: Yes (Hospitalization)
  Sender: FDA-Public Use
  Company Number: JP-009507513-1208JPN004875

PATIENT

DRUGS (7)
  1. PEG-INTRON [Suspect]
     Indication: HEPATITIS C
     Dosage: 1.5 MICROGRAM PER KILOGRAM, QW
     Route: 058
     Dates: start: 20120601
  2. POLARAMINE [Concomitant]
     Indication: PROPHYLAXIS
     Dosage: FORMULATION:POR, START INTERVAL: 4 DAY
     Route: 048
     Dates: start: 20120601
  3. REBETOL [Suspect]
     Indication: HEPATITIS C
     Dosage: 800 MG, QD
     Route: 048
     Dates: start: 20120601
  4. TELAVIC [Suspect]
     Indication: HEPATITIS C
     Dosage: 2250 MG, QD
     Route: 048
     Dates: start: 20120601
  5. OXATOMIDE [Concomitant]
     Indication: PROPHYLAXIS
     Dosage: FOMULATION: POR, START INTERVAL: 4 DAY
     Route: 048
     Dates: start: 20120601
  6. LANSOPRAZOLE [Concomitant]
     Indication: GASTROOESOPHAGEAL REFLUX DISEASE
     Dosage: FORMULATION: POR
     Route: 048
  7. IBRUPROFEN [Concomitant]
     Indication: PROPHYLAXIS
     Dosage: FORMULATION:POR
     Route: 048
     Dates: start: 20120601, end: 20120601

REACTIONS (2)
  - RASH [None]
  - OEDEMA [None]
